FAERS Safety Report 8924355 (Version 2)
Quarter: 2012Q4

REPORT INFORMATION
  Report Type: 
  Country: DE (occurrence: DE)
  Receive Date: 20121126
  Receipt Date: 20121224
  Transmission Date: 20130627
  Serious: Yes (Other)
  Sender: FDA-Public Use
  Company Number: DE-UCBSA-022915

PATIENT
  Age: 60 Year
  Sex: Female
  Weight: 78 kg

DRUGS (10)
  1. KEPPRA [Suspect]
     Indication: RASH
     Dosage: 500-0-500
     Route: 048
     Dates: start: 200610, end: 20100911
  2. KEPPRA [Suspect]
     Indication: EPILEPSY
     Dosage: 500-0-500
     Route: 048
     Dates: start: 200610, end: 20100911
  3. KEPPRA [Suspect]
     Indication: RASH
     Dosage: DAILY DOSE : 750/0/500 UNITS UNSPECIFIED
     Route: 048
     Dates: start: 20100911, end: 20101113
  4. KEPPRA [Suspect]
     Indication: EPILEPSY
     Dosage: DAILY DOSE : 750/0/500 UNITS UNSPECIFIED
     Route: 048
     Dates: start: 20100911, end: 20101113
  5. KEPPRA [Suspect]
     Indication: RASH
     Dosage: DAILY DOSE : 500/0/500
     Route: 048
     Dates: start: 20101114
  6. KEPPRA [Suspect]
     Indication: EPILEPSY
     Dosage: DAILY DOSE : 500/0/500
     Route: 048
     Dates: start: 20101114
  7. KEPPRA [Suspect]
     Indication: RASH
     Dosage: 500/750 MG
     Route: 048
  8. KEPPRA [Suspect]
     Indication: EPILEPSY
     Dosage: 500/750 MG
     Route: 048
  9. L-THYROXIN [Concomitant]
     Indication: HYPOTHYROIDISM
     Dosage: SINGLE DOSE : 100 UNITS UNSPECIFIED    DAILY DOSE : 100 UNITS UNSPECIFIED
     Route: 048
     Dates: start: 1996
  10. CO DIOVAN 160/12.5 [Concomitant]
     Indication: HYPERTENSION
     Dosage: SINGLE DOSE : 160/12.5 UNITS UNSPECIFIED
     Route: 048
     Dates: start: 2001

REACTIONS (49)
  - Coagulopathy [Unknown]
  - Rash [Recovered/Resolved]
  - Cough [Unknown]
  - Stomatitis [Unknown]
  - Inflammation [Unknown]
  - Skin exfoliation [Unknown]
  - Foot deformity [Unknown]
  - Bursa disorder [Unknown]
  - Fall [Unknown]
  - Blister [Unknown]
  - Thermal burn [Unknown]
  - Contusion [Unknown]
  - Muscle rupture [Unknown]
  - Gastritis [Unknown]
  - Monoplegia [Unknown]
  - Hernia [Unknown]
  - Eye disorder [Unknown]
  - Faecal incontinence [Unknown]
  - Haematoma [Unknown]
  - Speech disorder [Unknown]
  - Confusional state [Unknown]
  - Memory impairment [Unknown]
  - Tremor [Unknown]
  - Musculoskeletal stiffness [Unknown]
  - Melanocytic naevus [Unknown]
  - Micturition disorder [Unknown]
  - Convulsion [Unknown]
  - Inner ear inflammation [Unknown]
  - Nodule [Unknown]
  - Ulcer [Unknown]
  - Venous stenosis [Unknown]
  - Chemical injury [Unknown]
  - Oesophageal disorder [Unknown]
  - Dyspepsia [Unknown]
  - Mental disorder [Unknown]
  - Pain [Unknown]
  - Swelling [Unknown]
  - Dysphonia [Recovered/Resolved]
  - Drug intolerance [Unknown]
  - Mood swings [Unknown]
  - Arthralgia [Unknown]
  - Personality disorder [Unknown]
  - Balance disorder [Unknown]
  - Affect lability [Unknown]
  - Visual impairment [Unknown]
  - Carpal tunnel syndrome [Unknown]
  - Irritability [Unknown]
  - Speech disorder [Unknown]
  - Impatience [Unknown]
